FAERS Safety Report 7033157-7 (Version None)
Quarter: 2010Q4

REPORT INFORMATION
  Report Type: 
  Country: None (occurrence: None)
  Receive Date: 20101007
  Receipt Date: 20100922
  Transmission Date: 20110411
  Serious: Yes (Disabling, Other)
  Sender: FDA-Public Use
  Company Number: PHEH2007US02903

PATIENT
  Sex: Female

DRUGS (23)
  1. ZOMETA [Suspect]
     Indication: BONE NEOPLASM MALIGNANT
     Dosage: UNK
     Dates: start: 20060101, end: 20060401
  2. ZOMETA [Suspect]
     Indication: BONE DENSITY DECREASED
  3. FEMARA [Concomitant]
     Dosage: 2.5 MG, QD
  4. ZOLADEX [Concomitant]
     Dosage: 10.8 MG, UNK
     Route: 058
  5. CELEXA [Concomitant]
     Dosage: 40 MG, QD
  6. XANAX [Concomitant]
     Dosage: 0.5 MG, TID
  7. CELEBREX [Concomitant]
     Dosage: 200 MG, BID
  8. PRILOSEC [Concomitant]
     Dosage: UNK
  9. TRICHLORMETHIAZIDE [Concomitant]
     Dosage: 48 MG, QD
  10. CITALOPRAM HYDROBROMIDE [Concomitant]
     Dosage: 40 MG, QD
  11. MULTI-VITAMINS [Concomitant]
  12. GRAPE SEED [Concomitant]
  13. TYLENOL [Concomitant]
     Dosage: UNK
  14. LIDODERM [Concomitant]
  15. PERIDEX [Concomitant]
  16. METFORMIN [Concomitant]
  17. FASLODEX [Concomitant]
  18. OXYCODONE [Concomitant]
  19. NEURONTIN [Concomitant]
  20. TRICOR [Concomitant]
  21. NIASPAN [Concomitant]
  22. LANTUS [Concomitant]
  23. FISH OIL [Concomitant]

REACTIONS (25)
  - ACTINOMYCOSIS [None]
  - AMNESIA [None]
  - ANXIETY [None]
  - APHTHOUS STOMATITIS [None]
  - ARTHRALGIA [None]
  - BLOOD PRESSURE INCREASED [None]
  - BONE DISORDER [None]
  - DECREASED INTEREST [None]
  - DIZZINESS [None]
  - EXCORIATION [None]
  - FALL [None]
  - GENERAL PHYSICAL HEALTH DETERIORATION [None]
  - GLUCOSE TOLERANCE IMPAIRED [None]
  - JOINT SPRAIN [None]
  - LYMPHADENOPATHY [None]
  - METASTASES TO LIVER [None]
  - MUSCLE SPASMS [None]
  - OSTEOARTHRITIS [None]
  - OSTEONECROSIS OF JAW [None]
  - PAIN [None]
  - PNEUMONIA [None]
  - PRIMARY SEQUESTRUM [None]
  - TOOTH ABSCESS [None]
  - TOOTH EXTRACTION [None]
  - WEIGHT INCREASED [None]
